FAERS Safety Report 9306412 (Version 1)
Quarter: 2013Q1

REPORT INFORMATION
  Report Type: Spontaneous
  Country: US (occurrence: None)
  Receive Date: 20121203
  Receipt Date: 20121203
  Transmission Date: 20140127
  Serious: Yes (Hospitalization)
  Sender: FDA-Public Use
  Company Number: KR-2012-2299

PATIENT
  Age: 40 Year
  Sex: Female
  Weight: 57.7 kg

DRUGS (4)
  1. NAVELBINE (VINORELBINE TARTRATE) INFUSION [Suspect]
     Route: 042
     Dates: start: 20120316, end: 20120330
  2. BLBW 2992 (AFATINIB) [Concomitant]
  3. MUPIROCIN (MUPIROCIN) [Concomitant]
  4. DICAMAX [Concomitant]

REACTIONS (12)
  - Diarrhoea [None]
  - Insomnia [None]
  - Nausea [None]
  - Vomiting [None]
  - Rash [None]
  - Paronychia [None]
  - Stomatitis [None]
  - Dyspepsia [None]
  - Headache [None]
  - Epigastric discomfort [None]
  - Gastritis [None]
  - Dysuria [None]
